FAERS Safety Report 19034465 (Version 1)
Quarter: 2021Q1

REPORT INFORMATION
  Report Type: Spontaneous
  Country: DE (occurrence: DE)
  Receive Date: 20210320
  Receipt Date: 20210320
  Transmission Date: 20210420
  Serious: Yes (Congenital Anomaly)
  Sender: FDA-Public Use
  Company Number: DE-DRREDDYS-GER/GER/21/0132887

PATIENT
  Age: 1 Day
  Sex: Male
  Weight: 2.96 kg

DRUGS (8)
  1. PARACETAMOL [Concomitant]
     Active Substance: ACETAMINOPHEN
     Indication: PRODUCT USED FOR UNKNOWN INDICATION
     Dosage: 1000 [MG/D (BIS 500, BEI BEDARF) ]/ IF REQUIRED, NO DETAILS
     Route: 064
  2. PRESINOL [Concomitant]
     Active Substance: METHYLDOPA
     Indication: PRODUCT USED FOR UNKNOWN INDICATION
     Dosage: 500 [MG/D (BIS 250) ]
     Route: 064
  3. METOCLOPRAMIDE. [Concomitant]
     Active Substance: METOCLOPRAMIDE
     Indication: PRODUCT USED FOR UNKNOWN INDICATION
     Dosage: 10 [MG/D (BEI BEDARF) ]
     Route: 064
  4. VITAMIN B?KOMPLEX HEIDELBERGER CHLORELLA [Concomitant]
     Indication: PRODUCT USED FOR UNKNOWN INDICATION
     Dosage: RECOMMENDED BY NON?MEDICAL PRACTIIONER (^HEILPRAKTIKER^)
     Route: 064
     Dates: start: 20190611, end: 20200309
  5. GAVISCON ADVANCE [Suspect]
     Active Substance: POTASSIUM BICARBONATE\SODIUM ALGINATE
     Indication: PRODUCT USED FOR UNKNOWN INDICATION
     Route: 064
  6. CITALOPRAM [Suspect]
     Active Substance: CITALOPRAM HYDROBROMIDE
     Indication: PRODUCT USED FOR UNKNOWN INDICATION
     Dosage: 30 [MG/D ]
     Route: 064
     Dates: start: 20190611, end: 20200309
  7. NASENSPRAY RATIOPHARM KINDER [Concomitant]
     Indication: PRODUCT USED FOR UNKNOWN INDICATION
     Route: 064
  8. LEVOTHYROXINE SODIUM. [Concomitant]
     Active Substance: LEVOTHYROXINE SODIUM
     Indication: PRODUCT USED FOR UNKNOWN INDICATION
     Dosage: 50 MICROG/D
     Route: 064
     Dates: start: 20190611, end: 20200309

REACTIONS (5)
  - Foetal exposure during pregnancy [Unknown]
  - Eyelid ptosis congenital [Unknown]
  - Lenticulostriatal vasculopathy [Unknown]
  - Respiratory disorder neonatal [Recovered/Resolved]
  - Congenital nasal septum deviation [Unknown]

NARRATIVE: CASE EVENT DATE: 20200309
